FAERS Safety Report 11281274 (Version 2)
Quarter: 2015Q3

REPORT INFORMATION
  Report Type: Report from Study
  Country: US (occurrence: US)
  Receive Date: 20150717
  Receipt Date: 20150825
  Transmission Date: 20151125
  Serious: Yes (Death)
  Sender: FDA-Public Use
  Company Number: US-ABBVIE-15P-163-1412696-00

PATIENT
  Age: 57 Year
  Sex: Male
  Weight: 72 kg

DRUGS (1)
  1. VIEKIRA PAK [Suspect]
     Active Substance: DASABUVIR\OMBITASVIR\PARITAPREVIR\RITONAVIR
     Indication: CHRONIC HEPATITIS C
     Dosage: 12 WEEKS
     Route: 048
     Dates: start: 20150612, end: 20150629

REACTIONS (2)
  - Pruritus generalised [Not Recovered/Not Resolved]
  - Diabetes mellitus [Fatal]

NARRATIVE: CASE EVENT DATE: 201506
